FAERS Safety Report 15612999 (Version 5)
Quarter: 2019Q2

REPORT INFORMATION
  Report Type: Spontaneous
  Country: US (occurrence: US)
  Receive Date: 20181113
  Receipt Date: 20190402
  Transmission Date: 20190711
  Serious: Yes (Other)
  Sender: FDA-Public Use
  Company Number: US-PFIZER INC-2018466166

PATIENT
  Age: 45 Year
  Sex: Female
  Weight: 88 kg

DRUGS (3)
  1. LYRICA [Suspect]
     Active Substance: PREGABALIN
     Dosage: 200 MG, TWICE A DAY
  2. LYRICA [Suspect]
     Active Substance: PREGABALIN
     Dosage: 200 MG, THRICE A DAY
  3. LYRICA [Suspect]
     Active Substance: PREGABALIN
     Indication: FIBROMYALGIA
     Dosage: 150 MG, THREE TIMES A DAY
     Dates: start: 2012

REACTIONS (10)
  - Product prescribing error [Unknown]
  - Spinal osteoarthritis [Unknown]
  - Nausea [Unknown]
  - Product use issue [Unknown]
  - Nerve injury [Unknown]
  - Pain [Not Recovered/Not Resolved]
  - Nerve compression [Unknown]
  - Neurodegenerative disorder [Unknown]
  - Intervertebral disc degeneration [Unknown]
  - Condition aggravated [Unknown]

NARRATIVE: CASE EVENT DATE: 20181010
